FAERS Safety Report 6755273-7 (Version None)
Quarter: 2010Q2

REPORT INFORMATION
  Report Type: 
  Country: None (occurrence: None)
  Receive Date: 20100524
  Receipt Date: 20100316
  Transmission Date: 20101027
  Serious: No
  Sender: FDA-Public Use
  Company Number: 008938

PATIENT
  Weight: 65.7 kg

DRUGS (2)
  1. CIMZIA [Suspect]
     Indication: CROHN'S DISEASE
     Dosage: (SUBCUTANEOUS)
     Route: 058
     Dates: start: 20100315
  2. PREDNISONE [Concomitant]

REACTIONS (3)
  - RASH [None]
  - RASH MACULAR [None]
  - URTICARIA [None]
